FAERS Safety Report 14101585 (Version 6)
Quarter: 2018Q3

REPORT INFORMATION
  Report Type: Spontaneous
  Country: US (occurrence: US)
  Receive Date: 20171018
  Receipt Date: 20180905
  Transmission Date: 20181010
  Serious: No
  Sender: FDA-Public Use
  Company Number: US-PFIZER INC-2017445488

PATIENT
  Age: 68 Year
  Sex: Female
  Weight: 74.84 kg

DRUGS (6)
  1. WELLBUTRIN [Concomitant]
     Active Substance: BUPROPION HYDROCHLORIDE
     Indication: DEPRESSION
     Dosage: 1200 MG, 1X/DAY (I TAKE 4 PILLS EVERY MORNING)
     Route: 048
  2. LYRICA [Suspect]
     Active Substance: PREGABALIN
     Indication: TRIGEMINAL NEURALGIA
     Dosage: 225 MG, DAILY, 75 MG IN THE MORNING AND 150 MG AT NIGHT
     Route: 048
     Dates: end: 201707
  3. LYRICA [Suspect]
     Active Substance: PREGABALIN
     Indication: MULTIPLE SCLEROSIS
     Dosage: 75 MG, 1X/DAY(IN THE MORNING)
     Route: 048
  4. INSULIN [Concomitant]
     Active Substance: INSULIN NOS
     Dosage: UNK, DAILY
  5. LYRICA [Suspect]
     Active Substance: PREGABALIN
     Dosage: 150 MG, 1X/DAY (AT NIGHT)
     Route: 048
  6. LYRICA [Suspect]
     Active Substance: PREGABALIN
     Dosage: 2 MG, UNK

REACTIONS (15)
  - Burning sensation [Not Recovered/Not Resolved]
  - Fall [Unknown]
  - Drug dispensing error [Unknown]
  - Facial pain [Unknown]
  - Blood glucose increased [Unknown]
  - Speech disorder [Unknown]
  - Appetite disorder [Unknown]
  - Discomfort [Not Recovered/Not Resolved]
  - Sleep disorder [Unknown]
  - Hypoaesthesia oral [Unknown]
  - Condition aggravated [Unknown]
  - Anxiety [Unknown]
  - Bradyphrenia [Unknown]
  - Pain [Unknown]
  - Gait inability [Unknown]

NARRATIVE: CASE EVENT DATE: 201709
